FAERS Safety Report 15274170 (Version 7)
Quarter: 2019Q3

REPORT INFORMATION
  Report Type: Report from Study
  Country: CN (occurrence: CN)
  Receive Date: 20180814
  Receipt Date: 20190820
  Transmission Date: 20191004
  Serious: Yes (Death, Hospitalization)
  Sender: FDA-Public Use
  Company Number: CN-ROCHE-2168507

PATIENT
  Age: 59 Year
  Sex: Male
  Weight: 68 kg

DRUGS (51)
  1. ATEZOLIZUMAB. [Suspect]
     Active Substance: ATEZOLIZUMAB
     Indication: NON-SMALL CELL LUNG CANCER STAGE IV
     Dosage: ON 20/JUL/2018, HE RECEIVED THE MOST RECENT DOSE OF ATEZOLIZUMAB PRIOR TO EVENT ONSET.
     Route: 042
     Dates: start: 20180428
  2. INSULIN ASPART [Concomitant]
     Active Substance: INSULIN ASPART
     Route: 065
     Dates: start: 20180508, end: 20180804
  3. DEXMEDETOMIDINE HYDROCHLORIDE. [Concomitant]
     Active Substance: DEXMEDETOMIDINE HYDROCHLORIDE
     Route: 065
     Dates: start: 20180801, end: 20180802
  4. INSULIN [Concomitant]
     Active Substance: INSULIN NOS
     Route: 065
     Dates: start: 20180801, end: 20180802
  5. ADRENALINE HYDROCHLORIDE [Concomitant]
     Active Substance: EPINEPHRINE HYDROCHLORIDE
     Route: 065
     Dates: start: 20180804, end: 20180804
  6. IPRATROPIUM BROMIDE. [Concomitant]
     Active Substance: IPRATROPIUM BROMIDE
     Dosage: METERED DOSE INHALER
     Route: 065
     Dates: start: 20180802, end: 20180804
  7. OXYCODONE [Concomitant]
     Active Substance: OXYCODONE
     Indication: PAIN
     Route: 065
     Dates: start: 20180419, end: 20180804
  8. CODEINE PHOSPHATE [Concomitant]
     Active Substance: CODEINE PHOSPHATE
     Indication: COUGH
     Route: 065
     Dates: start: 20180408, end: 20180804
  9. TANNIC ACID [Concomitant]
     Active Substance: TANNIC ACID
     Indication: PHLEBITIS
     Route: 065
     Dates: start: 20180416, end: 20180804
  10. INSULIN DETEMIR [Concomitant]
     Active Substance: INSULIN DETEMIR
     Route: 065
     Dates: start: 20180510, end: 20180804
  11. DOXOFYLLINE [Concomitant]
     Active Substance: DOXOFYLLINE
     Route: 065
     Dates: start: 20180720, end: 20180722
  12. LINEZOLID. [Concomitant]
     Active Substance: LINEZOLID
     Route: 065
     Dates: start: 20180802, end: 20180804
  13. ACETAMINOPHEN. [Concomitant]
     Active Substance: ACETAMINOPHEN
     Indication: PAIN
     Route: 065
     Dates: start: 20180419, end: 20180804
  14. TROPISETRON HYDROCHLORIDE [Concomitant]
     Active Substance: TROPISETRON HYDROCHLORIDE
     Route: 065
     Dates: start: 20180720, end: 20180722
  15. INSULIN ASPART [Concomitant]
     Active Substance: INSULIN ASPART
     Route: 065
     Dates: start: 20180630, end: 20180804
  16. INSULIN DETEMIR [Concomitant]
     Active Substance: INSULIN DETEMIR
     Route: 065
     Dates: start: 20180630, end: 20180804
  17. CEFOPERAZONE SODIUM;SULBACTAM SODIUM [Concomitant]
     Route: 065
     Dates: start: 20180802, end: 20180803
  18. MIDAZOLAM [Concomitant]
     Active Substance: MIDAZOLAM HYDROCHLORIDE
     Route: 065
     Dates: start: 20180801, end: 20180803
  19. MOXIFLOXACIN HYDROCHLORIDE. [Concomitant]
     Active Substance: MOXIFLOXACIN HYDROCHLORIDE
     Route: 065
     Dates: start: 20180801, end: 20180801
  20. ISOPRENALINE HYDROCHLORIDE [Concomitant]
     Active Substance: ISOPROTERENOL HYDROCHLORIDE
     Route: 065
     Dates: start: 20180804, end: 20180804
  21. SODIUM BICARBONATE. [Concomitant]
     Active Substance: SODIUM BICARBONATE
     Route: 065
     Dates: start: 20180803, end: 20180803
  22. PEMETREXED. [Suspect]
     Active Substance: PEMETREXED
     Indication: NON-SMALL CELL LUNG CANCER STAGE IV
     Dosage: ON 29/JUN/2018, HE RECEIVED THE MOST RECENT DOSE OF PEMETREXED (930MG) PRIOR TO EVENT ONSET.
     Route: 042
     Dates: start: 20180428
  23. CISPLATIN. [Suspect]
     Active Substance: CISPLATIN
     Indication: NON-SMALL CELL LUNG CANCER STAGE IV
     Dosage: ON 29/JUN/2018, HE RECEIVED THE MOST RECENT DOSE OF CISPLATIN (120 MG) PRIOR TO EVENT ONSET.
     Route: 042
     Dates: start: 20180428
  24. COMPOUND METHOXYPHENAMINE [Concomitant]
     Indication: COUGH
     Route: 065
     Dates: start: 20180629, end: 20180804
  25. CEFAMANDOLE NAFATE [Concomitant]
     Active Substance: CEFAMANDOLE NAFATE
     Route: 065
     Dates: start: 20180801, end: 20180801
  26. METHYLPREDNISOLONE SODIUM SUCCINATE. [Concomitant]
     Active Substance: METHYLPREDNISOLONE SODIUM SUCCINATE
     Route: 065
     Dates: start: 20180801, end: 20180804
  27. SUCCINYLATED GELATIN [Concomitant]
     Active Substance: SUCCINYLATED GELATIN
     Route: 065
     Dates: start: 20180803, end: 20180803
  28. SODIUM ACETATE. [Concomitant]
     Active Substance: SODIUM ACETATE
     Route: 065
     Dates: start: 20180720, end: 20180720
  29. TROPISETRON HYDROCHLORIDE [Concomitant]
     Active Substance: TROPISETRON HYDROCHLORIDE
     Route: 065
     Dates: start: 20180629, end: 20180630
  30. PANTOPRAZOLE SODIUM. [Concomitant]
     Active Substance: PANTOPRAZOLE SODIUM
     Route: 065
     Dates: start: 20180801, end: 20180804
  31. SODIUM CHLORIDE. [Concomitant]
     Active Substance: SODIUM CHLORIDE
     Route: 065
     Dates: start: 20180629, end: 20180629
  32. RINGERS SOLUTION [Concomitant]
     Active Substance: CALCIUM CHLORIDE\POTASSIUM CHLORIDE\SODIUM CHLORIDE
     Route: 065
     Dates: start: 20180629, end: 20180629
  33. NOREPINEPHRINE BITARTRATE. [Concomitant]
     Active Substance: NOREPINEPHRINE BITARTRATE
     Indication: BLOOD PRESSURE INCREASED
     Route: 065
     Dates: start: 20180803, end: 20180804
  34. RINGERS SOLUTION [Concomitant]
     Active Substance: CALCIUM CHLORIDE\POTASSIUM CHLORIDE\SODIUM CHLORIDE
     Route: 065
     Dates: start: 20180802, end: 20180803
  35. FENTANYL CITRATE. [Concomitant]
     Active Substance: FENTANYL CITRATE
     Indication: ANALGESIC THERAPY
     Route: 065
     Dates: start: 20180801, end: 20180801
  36. SODIUM ACETATE. [Concomitant]
     Active Substance: SODIUM ACETATE
     Dosage: RINGER^S INJECTION?REPLENISH LIQUIDS
     Route: 065
     Dates: start: 20180629, end: 20180630
  37. IMIPENEM AND CILASTATIN SODIUM [Concomitant]
     Active Substance: CILASTATIN SODIUM\IMIPENEM
     Route: 065
     Dates: start: 20180803, end: 20180804
  38. DOPAMINE HYDROCHLORIDE. [Concomitant]
     Active Substance: DOPAMINE HYDROCHLORIDE
     Indication: BLOOD PRESSURE INCREASED
     Route: 065
     Dates: start: 20180803, end: 20180804
  39. FUROSEMIDE. [Concomitant]
     Active Substance: FUROSEMIDE
     Indication: POLYURIA
     Route: 065
     Dates: start: 20180802, end: 20180803
  40. PULMICORT TURBUHALER [Concomitant]
     Active Substance: BUDESONIDE
     Indication: WHEEZING
     Dosage: PULMICORT RESPULES
     Route: 065
     Dates: start: 20180802, end: 20180804
  41. PANTOPRAZOLE SODIUM. [Concomitant]
     Active Substance: PANTOPRAZOLE SODIUM
     Route: 065
     Dates: start: 20180629, end: 20180630
  42. PANTOPRAZOLE SODIUM. [Concomitant]
     Active Substance: PANTOPRAZOLE SODIUM
     Route: 065
     Dates: start: 20180720, end: 20180722
  43. DOXOFYLLINE [Concomitant]
     Active Substance: DOXOFYLLINE
     Route: 065
     Dates: start: 20180702, end: 20180804
  44. THYMOPENTIN [Concomitant]
     Active Substance: THYMOPENTIN
     Route: 065
     Dates: start: 20180802, end: 20180804
  45. SUFENTANIL CITRATE. [Concomitant]
     Active Substance: SUFENTANIL CITRATE
     Indication: ANALGESIC THERAPY
     Route: 065
     Dates: start: 20180801, end: 20180804
  46. AMBROXOL HYDROCHLORIDE [Concomitant]
     Active Substance: AMBROXOL HYDROCHLORIDE
     Route: 065
     Dates: start: 20180801, end: 20180801
  47. PULMICORT TURBUHALER [Concomitant]
     Active Substance: BUDESONIDE
     Dosage: PULMICORT RESPULES
     Route: 065
     Dates: start: 20180802, end: 20180804
  48. DOBUTAMINE HYDROCHLORIDE. [Concomitant]
     Active Substance: DOBUTAMINE HYDROCHLORIDE
     Indication: BLOOD PRESSURE INCREASED
     Route: 065
     Dates: start: 20180804, end: 20180804
  49. LIDOCAINE HYDROCHLORIDE. [Concomitant]
     Active Substance: LIDOCAINE HYDROCHLORIDE
     Indication: LOCAL ANAESTHESIA
     Route: 065
     Dates: start: 20180802, end: 20180803
  50. HEPARIN SODIUM. [Concomitant]
     Active Substance: HEPARIN SODIUM
     Route: 065
     Dates: start: 20180803, end: 20180803
  51. SODIUM ACETATE. [Concomitant]
     Active Substance: SODIUM ACETATE
     Route: 065
     Dates: start: 20180802, end: 20180803

REACTIONS (1)
  - Lung infection [Fatal]

NARRATIVE: CASE EVENT DATE: 20180726
